FAERS Safety Report 7989349-3 (Version None)
Quarter: 2011Q4

REPORT INFORMATION
  Report Type: 
  Country: None (occurrence: None)
  Receive Date: 20111219
  Receipt Date: 20111208
  Transmission Date: 20120403
  Serious: Yes (Other)
  Sender: FDA-Public Use
  Company Number: FR-JNJFOC-20111206205

PATIENT
  Age: 68 Year
  Sex: Male

DRUGS (2)
  1. ZYTIGA [Suspect]
     Indication: PROSTATE CANCER
     Route: 048
     Dates: end: 20111101
  2. UNSPECIFIED LOW-MOLECULAR WEIGHT HEPARIN [Concomitant]
     Indication: PULMONARY EMBOLISM
     Route: 065

REACTIONS (1)
  - PULMONARY EMBOLISM [None]
